FAERS Safety Report 16115662 (Version 3)
Quarter: 2019Q3

REPORT INFORMATION
  Report Type: Report from Study
  Country: FR (occurrence: FR)
  Receive Date: 20190326
  Receipt Date: 20190814
  Transmission Date: 20191004
  Serious: Yes (Hospitalization)
  Sender: FDA-Public Use
  Company Number: FR-ROCHE-2288913

PATIENT
  Age: 70 Year
  Sex: Female
  Weight: 85 kg

DRUGS (12)
  1. WELLVONE [Concomitant]
     Active Substance: ATOVAQUONE
     Route: 065
     Dates: start: 20181127
  2. DAFALGAN CODEINE [Concomitant]
     Active Substance: ACETAMINOPHEN\CODEINE PHOSPHATE
     Indication: RHINITIS
     Dosage: 500 MG/30 MG
     Route: 065
     Dates: start: 20190122, end: 20190128
  3. OBINUTUZUMAB. [Suspect]
     Active Substance: OBINUTUZUMAB
     Indication: B-CELL LYMPHOMA
     Dosage: DATE OF MOST RECENT DOSE PRIOR TO SAE WAS 05/FEB/2019
     Route: 042
     Dates: start: 20181114, end: 20190205
  4. CC-122 [Suspect]
     Active Substance: AVADOMIDE
     Indication: B-CELL LYMPHOMA
     Dosage: ONCE DAILY ON A 5/7-DAY
     Route: 048
     Dates: start: 20181113
  5. LEVOCETIRIZINE [Concomitant]
     Active Substance: LEVOCETIRIZINE
     Indication: RHINITIS
     Route: 048
     Dates: start: 20190122, end: 20190128
  6. SODIUM BICARBONATE. [Concomitant]
     Active Substance: SODIUM BICARBONATE
     Indication: STOMATITIS
     Dosage: 4 OTHERR
     Route: 065
     Dates: start: 20181120
  7. PRIVIGEN [Concomitant]
     Active Substance: HUMAN IMMUNOGLOBULIN G
     Indication: HYPOGAMMAGLOBULINAEMIA
     Route: 065
     Dates: start: 20190214, end: 20190214
  8. CC-122 [Suspect]
     Active Substance: AVADOMIDE
     Route: 065
     Dates: start: 20190108, end: 20190205
  9. DESLORATADINE. [Concomitant]
     Active Substance: DESLORATADINE
     Indication: RHINITIS
     Route: 048
     Dates: start: 20190122, end: 20190128
  10. KARDEGIC [Concomitant]
     Active Substance: ASPIRIN DL-LYSINE
     Route: 048
     Dates: start: 20181115
  11. POLARAMINE [Concomitant]
     Active Substance: DEXCHLORPHENIRAMINE MALEATE
     Route: 042
     Dates: start: 20190214, end: 20190214
  12. ZELITREX [Concomitant]
     Active Substance: VALACYCLOVIR HYDROCHLORIDE
     Dosage: 500 MG 2 IN 1 DAY
     Route: 065
     Dates: start: 20181127

REACTIONS (2)
  - Device related infection [Recovered/Resolved]
  - Pneumonia [Recovered/Resolved]

NARRATIVE: CASE EVENT DATE: 20190204
